FAERS Safety Report 10279380 (Version 1)
Quarter: 2014Q3

REPORT INFORMATION
  Report Type: Spontaneous
  Country: FI (occurrence: FI)
  Receive Date: 20140707
  Receipt Date: 20140707
  Transmission Date: 20150326
  Serious: Yes (Hospitalization)
  Sender: FDA-Public Use
  Company Number: PHHY2014FI082501

PATIENT
  Age: 79 Year
  Sex: Male

DRUGS (11)
  1. LESCOL DEPOT [Suspect]
     Active Substance: FLUVASTATIN SODIUM
     Indication: BLOOD CHOLESTEROL ABNORMAL
     Dosage: 1 DF, IN THE EVENING
  2. PREDNISONE. [Concomitant]
     Active Substance: PREDNISONE
     Dosage: 4 DF, QD
  3. DIFORMIN RETARD [Concomitant]
     Active Substance: METFORMIN HYDROCHLORIDE
     Indication: DIABETES MELLITUS
     Dosage: 1 DF, 1 IN MORNING AND 1 IN EVENING
  4. METOHEXAL [Concomitant]
     Active Substance: METOPROLOL SUCCINATE
     Indication: MYOCARDIAL INFARCTION
     Dosage: 1 DF, QD
  5. PREDNISONE. [Concomitant]
     Active Substance: PREDNISONE
     Dosage: 2 DF, QD
  6. PREDNISONE. [Concomitant]
     Active Substance: PREDNISONE
     Indication: GOUT
     Dosage: 6 DF, QD
  7. ORMOX [Concomitant]
     Indication: CORONARY ARTERY DISEASE
     Dosage: 1 DF, BID
  8. CARDACE [Concomitant]
     Active Substance: RAMIPRIL
     Dosage: 1 DF, QD
  9. MAREVAN FORTE [Concomitant]
     Indication: VENOUS THROMBOSIS
     Dosage: UNK UKN, UNK
  10. FURESIS [Concomitant]
     Active Substance: FUROSEMIDE
     Dosage: 1 DF, BID
  11. JANUVIA [Concomitant]
     Active Substance: SITAGLIPTIN PHOSPHATE
     Indication: DIABETES MELLITUS
     Dosage: 1 DF, PER DAY

REACTIONS (3)
  - Osteoarthritis [Unknown]
  - Musculoskeletal stiffness [Unknown]
  - Musculoskeletal pain [Unknown]
